FAERS Safety Report 8435409 (Version 5)
Quarter: 2013Q1

REPORT INFORMATION
  Report Type: Spontaneous
  Country: US (occurrence: US)
  Receive Date: 20120301
  Receipt Date: 20130205
  Transmission Date: 20140127
  Serious: Yes (Hospitalization)
  Sender: FDA-Public Use
  Company Number: US-GLAXOSMITHKLINE-B0698540A

PATIENT
  Age: 53 Year
  Sex: Male

DRUGS (1)
  1. AVANDIA [Suspect]
     Indication: DIABETES MELLITUS
     Dosage: 8MG PER DAY
     Route: 048
     Dates: start: 20040514, end: 20100126

REACTIONS (7)
  - Cardiac failure congestive [Not Recovered/Not Resolved]
  - Sinus bradycardia [Unknown]
  - Cardiovascular disorder [Unknown]
  - Cardiac disorder [Unknown]
  - Coronary artery disease [Unknown]
  - Left ventricular hypertrophy [Unknown]
  - Dilatation atrial [Unknown]
